FAERS Safety Report 8391114-2 (Version None)
Quarter: 2012Q2

REPORT INFORMATION
  Report Type: 
  Country: None (occurrence: None)
  Receive Date: 20120529
  Receipt Date: 20120524
  Transmission Date: 20120825
  Serious: Yes (Hospitalization)
  Sender: FDA-Public Use
  Company Number: HR-PFIZER INC-2012125875

PATIENT
  Age: 52 Year
  Sex: Female

DRUGS (3)
  1. CISPLATIN [Suspect]
     Indication: LUNG NEOPLASM MALIGNANT
     Dosage: 120 MG, 1X/DAY
     Route: 042
     Dates: start: 20120329, end: 20120329
  2. GEMCITABINE [Suspect]
     Indication: LUNG NEOPLASM MALIGNANT
     Dosage: 2100 MG, 1X/DAY
     Route: 042
     Dates: start: 20120329, end: 20120329
  3. GEMCITABINE [Suspect]
     Dosage: 2100 MG, 1X/DAY
     Route: 042
     Dates: start: 20120405, end: 20120405

REACTIONS (5)
  - THROMBOCYTOPENIA [None]
  - EPISTAXIS [None]
  - ANAEMIA [None]
  - MOUTH ULCERATION [None]
  - FEBRILE NEUTROPENIA [None]
